FAERS Safety Report 8936616 (Version 1)
Quarter: 2012Q4

REPORT INFORMATION
  Report Type: Report from Study
  Country: US (occurrence: US)
  Receive Date: 20121130
  Receipt Date: 20121130
  Transmission Date: 20130627
  Serious: Yes (Hospitalization, Other)
  Sender: FDA-Public Use
  Company Number: US-US-EMD SERONO, INC.-7178396

PATIENT
  Sex: Male

DRUGS (1)
  1. REBIF [Suspect]
     Indication: MULTIPLE SCLEROSIS
     Route: 058
     Dates: start: 20061204

REACTIONS (5)
  - Aortic aneurysm [Unknown]
  - Coronary arterial stent insertion [Unknown]
  - Post procedural complication [Unknown]
  - Balance disorder [Recovering/Resolving]
  - Muscle spasms [Not Recovered/Not Resolved]
